FAERS Safety Report 11623452 (Version 2)
Quarter: 2015Q4

REPORT INFORMATION
  Report Type: Spontaneous
  Country: AU (occurrence: AU)
  Receive Date: 20151013
  Receipt Date: 20151103
  Transmission Date: 20160304
  Serious: Yes (Other)
  Sender: FDA-Public Use
  Company Number: AU-ACCORD-034179

PATIENT
  Age: 8 Year
  Sex: Female

DRUGS (2)
  1. MONTELUKAST [Suspect]
     Active Substance: MONTELUKAST SODIUM
     Indication: PRODUCT USED FOR UNKNOWN INDICATION
     Route: 048
  2. FLUTICASONE PROPIONATE/SALMETEROL XINAFOATE [Concomitant]
     Dosage: DAILY DOSE OF 125MG/25MG

REACTIONS (3)
  - Drug ineffective [Unknown]
  - Product substitution issue [Unknown]
  - Asthma [Unknown]
